FAERS Safety Report 23179016 (Version 2)
Quarter: 2023Q4

REPORT INFORMATION
  Report Type: Spontaneous
  Country: US (occurrence: US)
  Receive Date: 20231113
  Receipt Date: 20231121
  Transmission Date: 20240109
  Serious: Yes (Other)
  Sender: FDA-Public Use
  Company Number: US-PFIZER INC-202300359258

PATIENT
  Sex: Female

DRUGS (1)
  1. DROPERIDOL [Suspect]
     Active Substance: DROPERIDOL
     Dosage: UNK

REACTIONS (2)
  - Respiratory distress [Unknown]
  - Drug hypersensitivity [Unknown]
